FAERS Safety Report 16193927 (Version 1)
Quarter: 2019Q2

REPORT INFORMATION
  Report Type: Spontaneous
  Country: FR (occurrence: FR)
  Receive Date: 20190413
  Receipt Date: 20190413
  Transmission Date: 20190711
  Serious: Yes (Other)
  Sender: FDA-Public Use
  Company Number: PHHY2019FR084778

PATIENT
  Age: 76 Year
  Sex: Male

DRUGS (1)
  1. GALANTAMINE HYDROBROMIDE. [Suspect]
     Active Substance: GALANTAMINE HYDROBROMIDE
     Indication: DEMENTIA WITH LEWY BODIES
     Dosage: UNK
     Route: 048

REACTIONS (6)
  - Confusional state [Recovered/Resolved]
  - Product use in unapproved indication [Unknown]
  - Hallucination, visual [Recovered/Resolved]
  - Behaviour disorder [Recovered/Resolved]
  - Off label use [Unknown]
  - Condition aggravated [Recovered/Resolved]
